FAERS Safety Report 12805381 (Version 1)
Quarter: 2016Q4

REPORT INFORMATION
  Report Type: Spontaneous
  Country: GB (occurrence: GB)
  Receive Date: 20161004
  Receipt Date: 20161004
  Transmission Date: 20170207
  Serious: Yes (Death, Other)
  Sender: FDA-Public Use
  Company Number: GB-ACCORD-044524

PATIENT
  Age: 56 Year
  Sex: Female
  Weight: 66.2 kg

DRUGS (13)
  1. CETIRIZINE [Concomitant]
     Active Substance: CETIRIZINE HYDROCHLORIDE
  2. DABIGATRAN/DABIGATRAN ETEXILATE [Suspect]
     Active Substance: DABIGATRAN ETEXILATE
     Indication: PULMONARY EMBOLISM
     Route: 048
     Dates: start: 20140926, end: 20160811
  3. AMITRIPTYLINE [Concomitant]
     Active Substance: AMITRIPTYLINE
  4. OMEPRAZOLE. [Concomitant]
     Active Substance: OMEPRAZOLE
  5. ORAMORPH [Concomitant]
     Active Substance: MORPHINE SULFATE
  6. PARACETAMOL [Concomitant]
     Active Substance: ACETAMINOPHEN
  7. QUININE [Concomitant]
     Active Substance: QUININE
  8. METHOTREXATE. [Suspect]
     Active Substance: METHOTREXATE
     Indication: RHEUMATOID ARTHRITIS
     Route: 048
     Dates: start: 20151207, end: 20160804
  9. ZOPICLONE [Concomitant]
     Active Substance: ZOPICLONE
  10. CELECOXIB. [Suspect]
     Active Substance: CELECOXIB
     Indication: RHEUMATOID ARTHRITIS
     Route: 048
     Dates: start: 20151209
  11. TAZOCIN [Concomitant]
     Active Substance: PIPERACILLIN SODIUM\TAZOBACTAM SODIUM
     Route: 042
  12. LEVOTHYROXINE. [Concomitant]
     Active Substance: LEVOTHYROXINE
  13. MST CONTINUS [Concomitant]
     Active Substance: MORPHINE SULFATE

REACTIONS (7)
  - Epistaxis [Not Recovered/Not Resolved]
  - Thirst decreased [Unknown]
  - Delirium [Unknown]
  - Pneumonia [Fatal]
  - Gastrointestinal haemorrhage [Not Recovered/Not Resolved]
  - Pancytopenia [Not Recovered/Not Resolved]
  - Decreased appetite [Unknown]

NARRATIVE: CASE EVENT DATE: 20160808
